FAERS Safety Report 20892301 (Version 2)
Quarter: 2022Q3

REPORT INFORMATION
  Report Type: Spontaneous
  Country: SE (occurrence: SE)
  Receive Date: 20220530
  Receipt Date: 20220724
  Transmission Date: 20221027
  Serious: Yes (Other)
  Sender: FDA-Public Use
  Company Number: SE-BIOGEN-2022BI01125459

PATIENT
  Age: 52 Year
  Sex: Male

DRUGS (1)
  1. DALFAMPRIDINE [Suspect]
     Active Substance: DALFAMPRIDINE
     Indication: Hereditary ataxia
     Dosage: THREE YEARS AGO
     Route: 050
     Dates: start: 2019

REACTIONS (5)
  - Hereditary ataxia [Unknown]
  - Epilepsy [Unknown]
  - Migraine [Unknown]
  - Vestibular neuronitis [Unknown]
  - Off label use [Unknown]
